FAERS Safety Report 5191968-7 (Version None)
Quarter: 2006Q4

REPORT INFORMATION
  Report Type: 
  Country: None (occurrence: None)
  Receive Date: 20061227
  Receipt Date: 20061213
  Transmission Date: 20070319
  Serious: Yes (Hospitalization, Other)
  Sender: FDA-Public Use
  Company Number: US-AMGEN-STX203492

PATIENT
  Sex: Female

DRUGS (1)
  1. ENBREL [Suspect]
     Indication: RHEUMATOID ARTHRITIS
     Route: 058
     Dates: start: 20031215, end: 20060701

REACTIONS (4)
  - LYMPHOMA [None]
  - PLATELET COUNT DECREASED [None]
  - TRANSFUSION [None]
  - WHITE BLOOD CELL COUNT DECREASED [None]
